APPROVED DRUG PRODUCT: DILTIAZEM HYDROCHLORIDE
Active Ingredient: DILTIAZEM HYDROCHLORIDE
Strength: 60MG
Dosage Form/Route: TABLET;ORAL
Application: A074093 | Product #002
Applicant: CHARTWELL MOLECULES LLC
Approved: Nov 5, 1992 | RLD: No | RS: No | Type: DISCN